FAERS Safety Report 5269940-8 (Version None)
Quarter: 2007Q1

REPORT INFORMATION
  Report Type: 
  Country: None (occurrence: None)
  Receive Date: 20070320
  Receipt Date: 20070312
  Transmission Date: 20070707
  Serious: Yes (Other)
  Sender: FDA-Public Use
  Company Number: DE-AVENTIS-200710641DE

PATIENT
  Age: 63 Year
  Sex: Female
  Weight: 88 kg

DRUGS (5)
  1. TAXOTERE [Suspect]
     Indication: BREAST CANCER
     Route: 042
     Dates: start: 20060612, end: 20060612
  2. DEXAMETHASONE [Concomitant]
     Indication: PROPHYLAXIS
     Dosage: DOSE: NOT REPORTED
  3. NEUPOGEN [Concomitant]
     Dosage: DOSE: NOT REPORTED
  4. ANTIEMETICS AND ANTINAUSEANTS [Concomitant]
     Dosage: DOSE: NOT REPORTED
  5. ANTIHISTAMINES [Concomitant]
     Dosage: DOSE: NOT REPORTED

REACTIONS (6)
  - DEPRESSION [None]
  - DIARRHOEA [None]
  - DIZZINESS [None]
  - GENERAL PHYSICAL HEALTH DETERIORATION [None]
  - LEUKOPENIA [None]
  - STOMATITIS [None]
